FAERS Safety Report 16376446 (Version 1)
Quarter: 2019Q2

REPORT INFORMATION
  Report Type: Spontaneous
  Country: FR (occurrence: FR)
  Receive Date: 20190531
  Receipt Date: 20190531
  Transmission Date: 20190711
  Serious: Yes (Hospitalization)
  Sender: FDA-Public Use
  Company Number: FR-009507513-1904FRA010753

PATIENT
  Age: 83 Year
  Sex: Male

DRUGS (4)
  1. FIDAXOMICIN [Suspect]
     Active Substance: FIDAXOMICIN
     Indication: CLOSTRIDIUM DIFFICILE INFECTION
     Dosage: 1 DF, TWICE DAILY (IN THE MORNING AND IN THE EVENING)
     Route: 050
     Dates: start: 20190405, end: 20190415
  2. METRONIDAZOLE. [Concomitant]
     Active Substance: METRONIDAZOLE
     Indication: CLOSTRIDIUM DIFFICILE INFECTION
     Dosage: UNK, UNK, UNKNOWN FREQ.
     Route: 065
  3. VANCOMYCIN [Suspect]
     Active Substance: VANCOMYCIN
     Indication: CLOSTRIDIUM DIFFICILE INFECTION
     Dosage: UNK, UNK, UNKNOWN FREQ.
     Route: 048
     Dates: start: 20190401
  4. FLAGYL [Suspect]
     Active Substance: METRONIDAZOLE\METRONIDAZOLE HYDROCHLORIDE
     Indication: CLOSTRIDIUM DIFFICILE INFECTION
     Dosage: UNK, UNK, UNKNOWN FREQ.
     Route: 065

REACTIONS (2)
  - Wrong technique in product usage process [Unknown]
  - Dysbiosis [Unknown]

NARRATIVE: CASE EVENT DATE: 20190405
